FAERS Safety Report 13102479 (Version 1)
Quarter: 2017Q1

REPORT INFORMATION
  Report Type: Spontaneous
  Country: AT (occurrence: AT)
  Receive Date: 20170110
  Receipt Date: 20170110
  Transmission Date: 20170428
  Serious: Yes (Hospitalization)
  Sender: FDA-Public Use
  Company Number: AT-KADMON PHARMACEUTICALS, LLC-KAD201701-000093

PATIENT
  Age: 56 Year
  Sex: Male
  Weight: 115 kg

DRUGS (7)
  1. PRADAXA [Concomitant]
     Active Substance: DABIGATRAN ETEXILATE MESYLATE
  2. CRESTOR 10 MG [Concomitant]
  3. PANTOPRAZOLE SODIUM SESQUIHYDRATE 40 MG [Concomitant]
  4. BISOSTAD 5 MG [Concomitant]
  5. RIBAVIRIN 600 MG TABLETS [Suspect]
     Active Substance: RIBAVIRIN
     Indication: CHRONIC HEPATITIS C
     Route: 048
     Dates: start: 201610, end: 201612
  6. METFORMIN [Concomitant]
     Active Substance: METFORMIN HYDROCHLORIDE
  7. AMELIOR 40/5 MG (AZOR) [Concomitant]

REACTIONS (5)
  - Oedema peripheral [Not Recovered/Not Resolved]
  - Papilloedema [Not Recovered/Not Resolved]
  - Pleural effusion [Not Recovered/Not Resolved]
  - Nephrotic syndrome [Not Recovered/Not Resolved]
  - Hypoalbuminaemia [Not Recovered/Not Resolved]

NARRATIVE: CASE EVENT DATE: 20161209
